FAERS Safety Report 4963576-1 (Version None)
Quarter: 2006Q1

REPORT INFORMATION
  Report Type: 
  Country: None (occurrence: None)
  Receive Date: 20060330
  Receipt Date: 20060321
  Transmission Date: 20060701
  Serious: Yes (Life-Threatening, Hospitalization)
  Sender: FDA-Public Use
  Company Number: 2006-03-1377

PATIENT
  Sex: Male

DRUGS (6)
  1. REBETOL [Suspect]
     Indication: HEPATITIS C
  2. EFFEXOR [Suspect]
  3. TEMESTA [Suspect]
  4. NOCTRAN (CLORAZEPATE/ACEPROMAZINE/ACEPROMETAZINE) [Suspect]
  5. DEPAKENE [Suspect]
  6. CODEINE [Suspect]

REACTIONS (4)
  - COMA [None]
  - DRUG SCREEN POSITIVE [None]
  - SEPTIC SHOCK [None]
  - SUICIDE ATTEMPT [None]
